FAERS Safety Report 16079019 (Version 2)
Quarter: 2019Q1

REPORT INFORMATION
  Report Type: Spontaneous
  Country: PL (occurrence: PL)
  Receive Date: 20190315
  Receipt Date: 20190327
  Transmission Date: 20190418
  Serious: Yes (Life-Threatening, Hospitalization)
  Sender: FDA-Public Use
  Company Number: PHHY2019PL056860

PATIENT
  Age: 43 Year
  Sex: Female
  Weight: 65 kg

DRUGS (1)
  1. GILENYA [Suspect]
     Active Substance: FINGOLIMOD HYDROCHLORIDE
     Indication: MULTIPLE SCLEROSIS
     Dosage: 0.5 MG/D
     Route: 048
     Dates: start: 2006, end: 20190227

REACTIONS (3)
  - Non-Hodgkin^s lymphoma [Not Recovered/Not Resolved]
  - Thymoma [Unknown]
  - Pneumonia [Unknown]

NARRATIVE: CASE EVENT DATE: 20190227
